FAERS Safety Report 11824049 (Version 8)
Quarter: 2016Q1

REPORT INFORMATION
  Report Type: Spontaneous
  Country: US (occurrence: US)
  Receive Date: 20151210
  Receipt Date: 20160204
  Transmission Date: 20160525
  Serious: Yes (Hospitalization)
  Sender: FDA-Public Use
  Company Number: US-JNJFOC-20151207555

PATIENT
  Age: 66 Year
  Sex: Male
  Weight: 100.7 kg

DRUGS (10)
  1. ASPIRIN. [Suspect]
     Active Substance: ASPIRIN
     Indication: PRODUCT USED FOR UNKNOWN INDICATION
     Route: 065
  2. DIGOXIN. [Concomitant]
     Active Substance: DIGOXIN
     Route: 065
  3. ALDACTONE [Concomitant]
     Active Substance: SPIRONOLACTONE
     Route: 065
  4. COREG [Concomitant]
     Active Substance: CARVEDILOL
     Route: 065
  5. FISH OIL [Concomitant]
     Active Substance: FISH OIL
     Route: 065
  6. LISINOPRIL/HCTZ [Concomitant]
     Active Substance: HYDROCHLOROTHIAZIDE\LISINOPRIL
     Dosage: 20/25 MG
     Route: 065
  7. XARELTO [Suspect]
     Active Substance: RIVAROXABAN
     Indication: ATRIAL FIBRILLATION
     Route: 048
     Dates: end: 20151204
  8. SOTALOL. [Concomitant]
     Active Substance: SOTALOL
     Route: 065
  9. ATORVASTATIN [Concomitant]
     Active Substance: ATORVASTATIN
     Route: 065
  10. XARELTO [Suspect]
     Active Substance: RIVAROXABAN
     Indication: CEREBROVASCULAR ACCIDENT PROPHYLAXIS
     Route: 048
     Dates: end: 20151204

REACTIONS (5)
  - Atrial fibrillation [Unknown]
  - Acute kidney injury [Recovered/Resolved]
  - Iron deficiency anaemia [Unknown]
  - Gastrointestinal haemorrhage [Recovering/Resolving]
  - Cardiac failure congestive [Unknown]

NARRATIVE: CASE EVENT DATE: 20151205
